FAERS Safety Report 5797015-8 (Version None)
Quarter: 2008Q3

REPORT INFORMATION
  Report Type: 
  Country: None (occurrence: None)
  Receive Date: 20080701
  Receipt Date: 20080619
  Transmission Date: 20090109
  Serious: Yes (Hospitalization)
  Sender: FDA-Public Use
  Company Number: JP-ABBOTT-08P-087-0459974-00

PATIENT
  Age: 67 Year
  Sex: Male

DRUGS (5)
  1. LEUPROLIDE ACETATE [Suspect]
     Indication: PROSTATE CANCER STAGE IV
     Route: 048
     Dates: start: 20070323
  2. BICALUTAMIDE [Concomitant]
     Indication: PROSTATE CANCER STAGE IV
     Route: 048
  3. CEFCAPENE PIVOXIL HYDROCHLORIDE [Concomitant]
     Indication: INFLAMMATION
     Route: 048
     Dates: start: 20070417, end: 20070427
  4. FLURBIPROFEN [Concomitant]
     Indication: INFLAMMATION
     Route: 048
     Dates: start: 20070417, end: 20070427
  5. NIZORAL [Concomitant]
     Indication: ONYCHOMYCOSIS
     Route: 062
     Dates: start: 20080214

REACTIONS (2)
  - COUGH [None]
  - EPIGLOTTITIS [None]
